FAERS Safety Report 7978389-6 (Version None)
Quarter: 2011Q4

REPORT INFORMATION
  Report Type: 
  Country: None (occurrence: None)
  Receive Date: 20111214
  Receipt Date: 20111206
  Transmission Date: 20120403
  Serious: Yes (Other)
  Sender: FDA-Public Use
  Company Number: CH-UCBSA-047324

PATIENT
  Age: 29 Year
  Sex: Female

DRUGS (3)
  1. KEPPRA [Suspect]
     Indication: STATUS EPILEPTICUS
     Dates: start: 20110826
  2. MIDAZOLAM HCL [Suspect]
     Dates: start: 20110801
  3. PHENYTOIN [Suspect]
     Indication: STATUS EPILEPTICUS
     Dates: start: 20110824

REACTIONS (3)
  - INTRA-UTERINE DEATH [None]
  - CAESAREAN SECTION [None]
  - MATERNAL EXPOSURE DURING PREGNANCY [None]
